FAERS Safety Report 18532998 (Version 2)
Quarter: 2020Q4

REPORT INFORMATION
  Report Type: Spontaneous
  Country: GB (occurrence: RS)
  Receive Date: 20201123
  Receipt Date: 20201210
  Transmission Date: 20210114
  Serious: Yes (Hospitalization, Other)
  Sender: FDA-Public Use
  Company Number: RS-ASTELLAS-2020US041277

PATIENT
  Age: 77 Year

DRUGS (1)
  1. TARCEVA [Suspect]
     Active Substance: ERLOTINIB HYDROCHLORIDE
     Indication: LUNG ADENOCARCINOMA
     Dosage: 150 MG, UNKNOWN FREQ. (12 CYCLES IN TOTAL)
     Route: 048
     Dates: start: 2019

REACTIONS (5)
  - Pleural effusion [Unknown]
  - Melaena [Recovered/Resolved]
  - Pulmonary embolism [Recovered/Resolved]
  - Embolism [Unknown]
  - Lymphadenopathy [Unknown]

NARRATIVE: CASE EVENT DATE: 202010
